FAERS Safety Report 11512670 (Version 1)
Quarter: 2015Q3

REPORT INFORMATION
  Report Type: Spontaneous
  Country: US (occurrence: US)
  Receive Date: 20150903
  Receipt Date: 20150903
  Transmission Date: 20151125
  Serious: No
  Sender: FDA-Public Use
  Company Number: US-ELI_LILLY_AND_COMPANY-US201003005913

PATIENT
  Age: 44 Year
  Sex: Female

DRUGS (3)
  1. HUMALOG [Suspect]
     Active Substance: INSULIN LISPRO
     Dosage: 14 U, DAILY (1/D)
     Dates: start: 20100315, end: 20100319
  2. HUMALOG [Suspect]
     Active Substance: INSULIN LISPRO
     Dosage: 14 U, DAILY (1/D)
     Dates: start: 20100315, end: 20100319
  3. HUMALOG [Suspect]
     Active Substance: INSULIN LISPRO
     Dosage: 16 U, DAILY (1/D)
     Dates: start: 20100315, end: 20100319

REACTIONS (6)
  - Gastrooesophageal reflux disease [Recovered/Resolved]
  - Dyspnoea [Recovered/Resolved]
  - Blood glucose increased [Unknown]
  - Chest pain [Recovered/Resolved]
  - Drug dose omission [Not Recovered/Not Resolved]
  - Abdominal pain [Recovered/Resolved]

NARRATIVE: CASE EVENT DATE: 20100315
